FAERS Safety Report 14338425 (Version 1)
Quarter: 2017Q4

REPORT INFORMATION
  Report Type: Spontaneous
  Country: FR (occurrence: FR)
  Receive Date: 20171229
  Receipt Date: 20171229
  Transmission Date: 20180321
  Serious: Yes (Death, Life-Threatening, Other)
  Sender: FDA-Public Use
  Company Number: FR-CIPLA LTD.-2017FR30516

PATIENT

DRUGS (9)
  1. ASPIRIN. [Concomitant]
     Active Substance: ASPIRIN
     Indication: ANTICOAGULANT THERAPY
     Dosage: UNK
     Route: 065
  2. ALBUMIN [Concomitant]
     Active Substance: ALBUMIN HUMAN
     Indication: HYPOALBUMINAEMIA
     Dosage: UNK
     Route: 065
  3. BUDESONIDE. [Suspect]
     Active Substance: BUDESONIDE
     Indication: HYPOALBUMINAEMIA
     Dosage: 9 MG, PER DAY
     Route: 048
  4. BUDESONIDE. [Suspect]
     Active Substance: BUDESONIDE
     Indication: GASTROINTESTINAL HAEMORRHAGE
     Dosage: UNK
     Route: 048
  5. SOMATOSTATIN [Concomitant]
     Active Substance: SOMATOSTATIN
     Indication: HYPOALBUMINAEMIA
     Dosage: 50 ?G, BID
     Route: 058
  6. FLUINDINONE [Concomitant]
     Indication: ANTICOAGULANT THERAPY
     Dosage: UNK
     Route: 065
  7. BUDESONIDE. [Suspect]
     Active Substance: BUDESONIDE
     Dosage: 9 MG, PER DAY
     Route: 048
  8. HEPARIN CALCIUM [Concomitant]
     Active Substance: HEPARIN CALCIUM
     Indication: ANTICOAGULANT THERAPY
     Dosage: UNK
     Route: 058
  9. SOMATOSTATIN [Concomitant]
     Active Substance: SOMATOSTATIN
     Indication: GASTROINTESTINAL HAEMORRHAGE
     Dosage: 25 ?G PER HOUR
     Route: 042

REACTIONS (5)
  - Cushing^s syndrome [Unknown]
  - Epstein-Barr virus infection [Unknown]
  - Death [Fatal]
  - Precursor B-lymphoblastic lymphoma [Unknown]
  - Hypokalaemia [Unknown]
